FAERS Safety Report 20481505 (Version 4)
Quarter: 2022Q2

REPORT INFORMATION
  Report Type: Spontaneous
  Country: US (occurrence: US)
  Receive Date: 20220216
  Receipt Date: 20220526
  Transmission Date: 20220721
  Serious: No
  Sender: FDA-Public Use
  Company Number: US-UCBSA-2022007796

PATIENT
  Sex: Male

DRUGS (1)
  1. NEUPRO [Suspect]
     Active Substance: ROTIGOTINE
     Indication: Product used for unknown indication
     Dosage: 2 MILLIGRAM, UNK
     Route: 062

REACTIONS (4)
  - Application site pruritus [Unknown]
  - Erythema [Unknown]
  - Skin irritation [Unknown]
  - Product adhesion issue [Unknown]
